FAERS Safety Report 12799494 (Version 1)
Quarter: 2016Q3

REPORT INFORMATION
  Report Type: Spontaneous
  Country: ES (occurrence: ES)
  Receive Date: 20160930
  Receipt Date: 20160930
  Transmission Date: 20161109
  Serious: Yes (Death)
  Sender: FDA-Public Use
  Company Number: ES-009507513-1609ESP011340

PATIENT
  Age: 82 Year
  Sex: Male

DRUGS (2)
  1. ZERBAXA [Suspect]
     Active Substance: CEFTOLOZANE SULFATE\TAZOBACTAM SODIUM
     Indication: PNEUMONIA PSEUDOMONAL
     Dosage: UNK UNK, UNKNOWN
     Route: 042
     Dates: start: 201609, end: 201609
  2. ZERBAXA [Suspect]
     Active Substance: CEFTOLOZANE SULFATE\TAZOBACTAM SODIUM
     Dosage: NEW DOSE WAS THE DOUBLE
     Route: 042
     Dates: start: 201609

REACTIONS (2)
  - Disease progression [Fatal]
  - Product use issue [Unknown]

NARRATIVE: CASE EVENT DATE: 201609
